FAERS Safety Report 4996251-8 (Version None)
Quarter: 2006Q2

REPORT INFORMATION
  Report Type: 
  Country: None (occurrence: None)
  Receive Date: 20060509
  Receipt Date: 20051017
  Transmission Date: 20061013
  Serious: Yes (Death, Other)
  Sender: FDA-Public Use
  Company Number: PHNR2005AU01513

PATIENT
  Age: 58 Year
  Sex: Male

DRUGS (4)
  1. PAMIDRONATE DISODIUM [Suspect]
     Indication: MULTIPLE MYELOMA
  2. MS CONTIN [Concomitant]
  3. BACLOFEN [Concomitant]
  4. ZOLOFT [Concomitant]

REACTIONS (7)
  - BONE DEBRIDEMENT [None]
  - BONE MARROW TRANSPLANT REJECTION [None]
  - BONE PAIN [None]
  - IMPAIRED HEALING [None]
  - OSTEONECROSIS [None]
  - TOOTH EXTRACTION [None]
  - WOUND CLOSURE [None]
